FAERS Safety Report 15463012 (Version 1)
Quarter: 2018Q4

REPORT INFORMATION
  Report Type: Spontaneous
  Country: BE (occurrence: BE)
  Receive Date: 20181004
  Receipt Date: 20181004
  Transmission Date: 20190204
  Serious: Yes (Other)
  Sender: FDA-Public Use
  Company Number: BE-ROCHE-2191320

PATIENT
  Age: 57 Year
  Sex: Female

DRUGS (3)
  1. OCREVUS [Suspect]
     Active Substance: OCRELIZUMAB
     Indication: RELAPSING-REMITTING MULTIPLE SCLEROSIS
     Route: 042
     Dates: start: 20180601
  2. BACLOFEN. [Concomitant]
     Active Substance: BACLOFEN
     Dosage: MULTIPLE SCLEROSIS SPASTICITY
     Route: 048
     Dates: start: 20170127
  3. FAMPYRA [Concomitant]
     Active Substance: DALFAMPRIDINE
     Dosage: MULTIPLE SCLEROSIS SPASTICITY
     Route: 048
     Dates: start: 20180330

REACTIONS (1)
  - Multiple sclerosis relapse [Not Recovered/Not Resolved]

NARRATIVE: CASE EVENT DATE: 20180910
